FAERS Safety Report 4813029-6 (Version None)
Quarter: 2005Q4

REPORT INFORMATION
  Report Type: 
  Country: None (occurrence: None)
  Receive Date: 20051028
  Receipt Date: 20050606
  Transmission Date: 20060501
  Serious: No
  Sender: FDA-Public Use
  Company Number: US-GLAXOSMITHKLINE-A0561370A

PATIENT
  Sex: Male

DRUGS (11)
  1. ADVAIR DISKUS 100/50 [Suspect]
     Indication: DRUG USE FOR UNKNOWN INDICATION
     Dosage: 1PUFF TWICE PER DAY
     Route: 055
  2. WARFARIN [Concomitant]
  3. POTASSIUM [Concomitant]
  4. LASIX [Concomitant]
  5. ALBUTEROL [Concomitant]
  6. GLYBURIDE [Concomitant]
  7. ALBUTEROL [Concomitant]
  8. TERAZOSIN [Concomitant]
  9. METOPROLOL [Concomitant]
  10. BUSPAR [Concomitant]
  11. NORVASC [Concomitant]

REACTIONS (1)
  - DRUG INEFFECTIVE [None]
